FAERS Safety Report 5503546-8 (Version None)
Quarter: 2007Q4

REPORT INFORMATION
  Report Type: 
  Country: None (occurrence: None)
  Receive Date: 20071029
  Receipt Date: 20071018
  Transmission Date: 20080405
  Serious: Yes (Hospitalization)
  Sender: FDA-Public Use
  Company Number: GXKR2007GB08994

PATIENT
  Age: 39 Year
  Sex: Female

DRUGS (6)
  1. CIPROFLOXACIN HYDROCHLORIDE [Suspect]
     Dosage: 500 MG, BID
     Dates: end: 20070921
  2. TIGECYCLINE(TIGECYCLINE) [Suspect]
     Indication: OSTEOMYELITIS
     Dosage: 50 MG, BID, INTRAVENOUS
     Route: 042
     Dates: start: 20070910
  3. CASPOFUNGIN ACETATE (CASPOFUNGIN ACETATE) [Concomitant]
  4. LORATADINE [Concomitant]
  5. ACETAMINOPHEN [Concomitant]
  6. RANITIDINE [Concomitant]

REACTIONS (2)
  - MOUTH ULCERATION [None]
  - TONGUE ULCERATION [None]
